FAERS Safety Report 8126860-9 (Version None)
Quarter: 2012Q1

REPORT INFORMATION
  Report Type: 
  Country: None (occurrence: None)
  Receive Date: 20120210
  Receipt Date: 20120207
  Transmission Date: 20120608
  Serious: No
  Sender: FDA-Public Use
  Company Number: US-PFIZER INC-2012033830

PATIENT
  Sex: Female
  Weight: 50.794 kg

DRUGS (2)
  1. CALCIUM CARBONATE [Concomitant]
     Dosage: UNK
  2. NIFEDIPINE [Suspect]
     Indication: RAYNAUD'S PHENOMENON
     Dosage: UNK

REACTIONS (2)
  - SKIN DISCOLOURATION [None]
  - HYPOAESTHESIA [None]
